FAERS Safety Report 5997266 (Version 22)
Quarter: 2013Q3

REPORT INFORMATION
  Report Type: Spontaneous
  Country: US (occurrence: US)
  Receive Date: 20060303
  Receipt Date: 20130827
  Transmission Date: 20140515
  Serious: Yes (Hospitalization, Other)
  Sender: FDA-Public Use
  Company Number: PHEH2006US02522

PATIENT
  Age: 58 Year
  Sex: Female

DRUGS (42)
  1. AREDIA [Suspect]
     Dates: start: 20000614
  2. ZOMETA [Suspect]
     Indication: BREAST CANCER METASTATIC
     Dates: end: 20080407
  3. BISPHOSPHONATES [Concomitant]
     Dates: end: 200509
  4. XANAX [Concomitant]
     Indication: ANXIETY
  5. ATIVAN [Concomitant]
  6. SSRI [Concomitant]
  7. TAMOXIFEN [Concomitant]
  8. SEPTRA DS [Concomitant]
  9. CARISOPRODOL [Concomitant]
  10. PHENERGAN ^AVENTIS PHARMA^ [Concomitant]
  11. ALLEGRA [Concomitant]
  12. SOMA [Concomitant]
  13. AMOXIL ^AYERST LAB^ [Concomitant]
  14. MELATONIN [Concomitant]
  15. PROFEN II [Concomitant]
  16. CHEMOTHERAPEUTICS NOS [Concomitant]
  17. NEURONTIN [Concomitant]
  18. PENICILLIN ^GRUNENTHAL^ [Concomitant]
  19. TYLENOL [Concomitant]
  20. ROBITUSSIN ^ROBINS^ [Concomitant]
  21. NYQUIL [Concomitant]
  22. CELEXA [Concomitant]
  23. KEFLEX                                  /UNK/ [Concomitant]
  24. VALIUM [Concomitant]
  25. ENALAPRIL ^1A FARMA^ [Concomitant]
     Dosage: 10 MG, QD
     Route: 048
  26. TRAMADOL [Concomitant]
     Dosage: 50 MG, PRN
     Route: 048
  27. NAPROXEN [Concomitant]
     Dosage: 500 MG, PRN
     Route: 048
  28. METHOCARBAMOL [Concomitant]
     Dosage: 500 MG, UNK
     Route: 048
  29. Z-PAK [Concomitant]
     Dosage: 250 MG, QD
     Route: 048
  30. FASLODEX [Concomitant]
  31. ADRIAMYCIN + TAXOL [Concomitant]
     Dates: start: 200005
  32. ALPRAZOLAM [Concomitant]
     Route: 048
  33. ARIMIDEX ^ASTRAZENECA^ [Concomitant]
  34. FEMARA [Concomitant]
     Route: 048
  35. EPOGEN [Concomitant]
     Dosage: 40000 U, QW
  36. PERIDEX [Concomitant]
  37. COMPAZINE [Concomitant]
  38. COLACE [Concomitant]
  39. ZOFRAN [Concomitant]
  40. POTASSIUM [Concomitant]
  41. ERYTHROPOIETIN [Concomitant]
  42. MIRACLE MOUTHWASH [Concomitant]

REACTIONS (102)
  - Osteonecrosis of jaw [Unknown]
  - Exostosis of jaw [Unknown]
  - Osteomyelitis [Recovered/Resolved]
  - Pain in jaw [Unknown]
  - Injury [Unknown]
  - Emotional distress [Unknown]
  - Oedema mouth [Unknown]
  - Swelling [Recovered/Resolved]
  - Trismus [Unknown]
  - Mouth ulceration [Unknown]
  - Tooth fracture [Unknown]
  - Dental caries [Unknown]
  - Wound [Unknown]
  - Tooth loss [Unknown]
  - Toothache [Unknown]
  - Facial pain [Unknown]
  - Bone disorder [Unknown]
  - Impaired healing [Unknown]
  - Anxiety [Unknown]
  - Cough [Unknown]
  - Panic disorder [Unknown]
  - Joint range of motion decreased [Unknown]
  - Muscular weakness [Unknown]
  - Rib fracture [Unknown]
  - Depression [Unknown]
  - Mental status changes [Unknown]
  - Insomnia [Unknown]
  - Cervical dysplasia [Unknown]
  - Anogenital warts [Unknown]
  - Breast induration [Unknown]
  - Tremor [Unknown]
  - Agitation [Unknown]
  - Muscle strain [Unknown]
  - Dermal cyst [Unknown]
  - Back pain [Unknown]
  - Metastases to bone [Unknown]
  - Osteopenia [Unknown]
  - Hiatus hernia [Unknown]
  - Gastrooesophageal reflux disease [Unknown]
  - Gastric ulcer [Unknown]
  - Gait disturbance [Unknown]
  - VIIth nerve paralysis [Unknown]
  - Urosepsis [Unknown]
  - Urinary tract infection [Unknown]
  - Rash [Unknown]
  - Decreased appetite [Unknown]
  - Otitis media [Unknown]
  - Tongue ulceration [Unknown]
  - Oral pain [Unknown]
  - Gingivitis [Unknown]
  - Tooth abscess [Unknown]
  - Obesity [Unknown]
  - Conjunctivitis [Unknown]
  - Hypertriglyceridaemia [Unknown]
  - Tachycardia [Unknown]
  - Adrenal mass [Unknown]
  - Renal cyst [Unknown]
  - Foot deformity [Unknown]
  - Scoliosis [Unknown]
  - Cholelithiasis [Unknown]
  - Osteoporosis [Unknown]
  - Diverticulum intestinal [Unknown]
  - Spinal osteoarthritis [Unknown]
  - Intervertebral disc protrusion [Unknown]
  - Arthropathy [Unknown]
  - Vertebral foraminal stenosis [Unknown]
  - Onychomycosis [Unknown]
  - Ingrowing nail [Unknown]
  - Nail avulsion [Unknown]
  - Tooth infection [Unknown]
  - Physical disability [Unknown]
  - Carcinoembryonic antigen increased [Unknown]
  - Tooth erosion [Unknown]
  - Dental plaque [Unknown]
  - Poor personal hygiene [Unknown]
  - Hypoaesthesia [Unknown]
  - Hordeolum [Unknown]
  - Type V hyperlipidaemia [Unknown]
  - Hypertension [Unknown]
  - Rhinitis allergic [Unknown]
  - Human papilloma virus test positive [Unknown]
  - Peripheral vascular disorder [Unknown]
  - Hyperaesthesia [Unknown]
  - Foot fracture [Unknown]
  - Limb injury [Unknown]
  - Hearing impaired [Unknown]
  - Oropharyngeal pain [Unknown]
  - Pain in extremity [Unknown]
  - Dry skin [Unknown]
  - Skin fissures [Unknown]
  - Onycholysis [Unknown]
  - Cellulitis [Recovered/Resolved]
  - Periostitis [Unknown]
  - Mastication disorder [Unknown]
  - Eye inflammation [Unknown]
  - Cataract [Unknown]
  - Punctate keratitis [Unknown]
  - Colon cancer [Unknown]
  - Second primary malignancy [Unknown]
  - Haematemesis [Unknown]
  - Pollakiuria [Unknown]
  - Dysuria [Unknown]
